FAERS Safety Report 9067024 (Version 1)
Quarter: 2013Q1

REPORT INFORMATION
  Report Type: Spontaneous
  Country: US (occurrence: US)
  Receive Date: 20130214
  Receipt Date: 20130214
  Transmission Date: 20140127
  Serious: Yes (Other)
  Sender: FDA-Public Use
  Company Number: US-JNJFOC-20130205730

PATIENT
  Age: 66 Year
  Sex: Female
  Weight: 80.29 kg

DRUGS (5)
  1. BENADRYL ALLERGY DYE-FREE [Suspect]
     Indication: MULTIPLE ALLERGIES
     Dosage: LARGER DOSE
     Route: 048
  2. BENADRYL ALLERGY DYE-FREE [Suspect]
     Indication: MULTIPLE ALLERGIES
     Route: 048
     Dates: start: 20130122, end: 20130204
  3. LISINOPRIL [Concomitant]
     Indication: HYPERTENSION
     Dosage: SIX YEARS AGO
     Route: 065
  4. LASIX [Concomitant]
     Indication: FLUID RETENTION
     Dosage: SIX YEARS AGO
     Route: 065
  5. ZOCOR [Concomitant]
     Indication: BLOOD CHOLESTEROL
     Dosage: SIX YEARS AGO
     Route: 065

REACTIONS (5)
  - Haemoptysis [Not Recovered/Not Resolved]
  - Feeling jittery [Not Recovered/Not Resolved]
  - Cough [Not Recovered/Not Resolved]
  - Drug ineffective [Unknown]
  - Incorrect dose administered [Unknown]
